FAERS Safety Report 6719441-2 (Version None)
Quarter: 2010Q2

REPORT INFORMATION
  Report Type: 
  Country: None (occurrence: None)
  Receive Date: 20100510
  Receipt Date: 20100510
  Transmission Date: 20101027
  Serious: No
  Sender: FDA-Public Use
  Company Number: None

PATIENT
  Age: 36 Year
  Sex: Male
  Weight: 102.3 kg

DRUGS (2)
  1. GABAPENTIN [Suspect]
     Indication: PAIN
     Dosage: GABAPENTIN 900MG BID ORAL
     Route: 048
     Dates: start: 20100325, end: 20100506
  2. HYDROCHLOROTHIAZIDE [Suspect]
     Indication: HYPERTENSION
     Dosage: HCTZ 25MG QD ORAL
     Route: 048

REACTIONS (2)
  - ERYTHEMA MULTIFORME [None]
  - STEVENS-JOHNSON SYNDROME [None]
